FAERS Safety Report 8473641-2 (Version None)
Quarter: 2012Q2

REPORT INFORMATION
  Report Type: 
  Country: None (occurrence: None)
  Receive Date: 20120628
  Receipt Date: 20110810
  Transmission Date: 20120825
  Serious: Yes (Death)
  Sender: FDA-Public Use
  Company Number: US-MYLANLABS-2011S1015663

PATIENT
  Age: 52 Year
  Sex: Female
  Weight: 114.31 kg

DRUGS (20)
  1. LEVOTHYROXINE [Concomitant]
  2. CALCIUM [Concomitant]
  3. RISPERDAL [Concomitant]
  4. FLUOXETINE [Concomitant]
  5. PLAVIX [Concomitant]
  6. DOCUSATE [Concomitant]
  7. SINGULAIR [Concomitant]
  8. SIMVASTATIN [Concomitant]
  9. LAXATIVE [Concomitant]
  10. RISPERDAL CONSTA [Concomitant]
     Route: 030
  11. ENABLEX [Concomitant]
  12. MAGNESIUM CITRATE [Concomitant]
  13. DIVALPROEX SODIUM EXTENDED RELEASE [Concomitant]
  14. OMEPRAZOLE [Concomitant]
  15. DESMOPRESSIN ACETATE [Concomitant]
  16. ADVAIR DISKUS 100/50 [Concomitant]
  17. ALBUTEROL [Concomitant]
  18. ENULOSE [Concomitant]
  19. BENZTROPINE MESYLATE [Concomitant]
  20. CLOZAPINE [Suspect]
     Indication: SCHIZOPHRENIA, PARANOID TYPE

REACTIONS (1)
  - INTESTINAL OBSTRUCTION [None]
